FAERS Safety Report 6000433-6 (Version None)
Quarter: 2008Q4

REPORT INFORMATION
  Report Type: 
  Country: None (occurrence: None)
  Receive Date: 20081215
  Receipt Date: 20081211
  Transmission Date: 20090506
  Serious: Yes (Death, Hospitalization, Other)
  Sender: FDA-Public Use
  Company Number: IE-ABBOTT-08P-229-0492396-00

PATIENT
  Age: 69 Year
  Sex: Female

DRUGS (4)
  1. KLARICID TABLETS [Suspect]
     Indication: RESPIRATORY TRACT INFECTION
     Dates: start: 20061121, end: 20061123
  2. ERYTHROMYCIN [Suspect]
     Indication: RESPIRATORY TRACT INFECTION
     Dates: start: 20061113
  3. WARFARIN SODIUM [Suspect]
     Indication: THROMBOSIS PROPHYLAXIS
  4. AUGMENTIN '125' [Suspect]
     Indication: RESPIRATORY TRACT INFECTION
     Dates: start: 20061013

REACTIONS (4)
  - CIRCULATORY COLLAPSE [None]
  - HAEMORRHAGE [None]
  - INTERNATIONAL NORMALISED RATIO [None]
  - MALAISE [None]
